FAERS Safety Report 9487049 (Version 6)
Quarter: 2014Q1

REPORT INFORMATION
  Report Type: Report from Study
  Country: CA (occurrence: CA)
  Receive Date: 20130829
  Receipt Date: 20140213
  Transmission Date: 20141002
  Serious: Yes (Other)
  Sender: FDA-Public Use
  Company Number: CA-ROCHE-1138279

PATIENT
  Age: 67 Year
  Sex: Female
  Weight: 101 kg

DRUGS (5)
  1. ACTEMRA [Suspect]
     Indication: RHEUMATOID ARTHRITIS
     Route: 042
     Dates: start: 20111214, end: 20140122
  2. ACTEMRA [Suspect]
     Route: 042
     Dates: start: 20120517
  3. ACTEMRA [Suspect]
     Route: 042
     Dates: start: 20011216
  4. NAPROSYN [Suspect]
     Indication: RHEUMATOID ARTHRITIS
     Route: 048
     Dates: start: 20130408
  5. TYLENOL [Concomitant]
     Route: 065

REACTIONS (9)
  - Skin lesion [Recovered/Resolved]
  - Skin infection [Unknown]
  - Arthropod bite [Recovering/Resolving]
  - Cellulitis [Recovered/Resolved]
  - Infected bites [Recovering/Resolving]
  - Infection [Unknown]
  - Sneezing [Unknown]
  - Rhinorrhoea [Unknown]
  - Weight decreased [Unknown]
